FAERS Safety Report 7628749-8 (Version None)
Quarter: 2011Q3

REPORT INFORMATION
  Report Type: 
  Country: None (occurrence: None)
  Receive Date: 20110722
  Receipt Date: 20110623
  Transmission Date: 20111222
  Serious: Yes (Other)
  Sender: FDA-Public Use
  Company Number: GB-BAYER-2011-056788

PATIENT
  Age: 81 Year
  Sex: Male
  Weight: 80 kg

DRUGS (10)
  1. ACETYLSALICYLIC ACID SRT [Suspect]
  2. LEVOTHYROXINE SODIUM [Concomitant]
     Dosage: UNK
     Dates: start: 20110201
  3. ATENOLOL [Concomitant]
     Dosage: UNK
     Dates: start: 20110201
  4. MOMETASONE FUROATE [Concomitant]
     Dosage: UNK
     Dates: start: 20110323, end: 20110422
  5. RAMIPRIL [Concomitant]
     Dosage: UNK
     Dates: start: 20110201
  6. SULFASALAZINE [Concomitant]
     Dosage: UNK
     Dates: start: 20110223
  7. METHOTREXATE [Concomitant]
     Dosage: UNK
     Dates: start: 20110223
  8. ISOSORBIDE MONONITRATE [Concomitant]
     Dosage: UNK
     Dates: start: 20110201
  9. EZETIMIBE [Concomitant]
     Dosage: UNK
     Dates: start: 20110201
  10. FOLIC ACID [Concomitant]
     Dosage: UNK
     Dates: start: 20110223

REACTIONS (2)
  - DUODENITIS [None]
  - GASTRITIS [None]
